FAERS Safety Report 8153312-2 (Version None)
Quarter: 2012Q1

REPORT INFORMATION
  Report Type: 
  Country: None (occurrence: None)
  Receive Date: 20120103
  Receipt Date: 20111101
  Transmission Date: 20120608
  Serious: No
  Sender: FDA-Public Use
  Company Number: AE-2011-002891

PATIENT
  Age: 60 Year
  Sex: Female
  Weight: 175 kg

DRUGS (1)
  1. INCIVEK [Suspect]

REACTIONS (20)
  - DECREASED APPETITE [None]
  - NAUSEA [None]
  - VISUAL IMPAIRMENT [None]
  - CHEST PAIN [None]
  - TREMOR [None]
  - SJOGREN'S SYNDROME [None]
  - BLISTER [None]
  - FUNGAL INFECTION [None]
  - SINUS HEADACHE [None]
  - QUALITY OF LIFE DECREASED [None]
  - VERTIGO [None]
  - GAIT DISTURBANCE [None]
  - DIZZINESS [None]
  - DYSPNOEA [None]
  - ANAL PRURITUS [None]
  - BREAST TENDERNESS [None]
  - CONFUSIONAL STATE [None]
  - MIGRAINE [None]
  - GINGIVAL BLEEDING [None]
  - VOMITING [None]
